FAERS Safety Report 5783901-1 (Version None)
Quarter: 2008Q2

REPORT INFORMATION
  Report Type: 
  Country: None (occurrence: None)
  Receive Date: 20080605
  Receipt Date: 20080509
  Transmission Date: 20081010
  Serious: No
  Sender: FDA-Public Use
  Company Number: A0717517A

PATIENT
  Sex: Female

DRUGS (3)
  1. ALLI [Suspect]
     Indication: DRUG USE FOR UNKNOWN INDICATION
  2. BLOOD PRESSURE MEDICATION [Concomitant]
  3. UNSPECIFIED MEDICATION [Concomitant]
     Indication: FIBROMYALGIA

REACTIONS (32)
  - ABDOMINAL PAIN UPPER [None]
  - BACK PAIN [None]
  - BLISTER [None]
  - CONSTIPATION [None]
  - DRUG INEFFECTIVE [None]
  - EATING DISORDER [None]
  - FATIGUE [None]
  - FEELING HOT [None]
  - FOOD CRAVING [None]
  - FREQUENT BOWEL MOVEMENTS [None]
  - GASTRIC DISORDER [None]
  - HAEMORRHOIDAL HAEMORRHAGE [None]
  - HEADACHE [None]
  - HUNGER [None]
  - HYPERTENSION [None]
  - ILL-DEFINED DISORDER [None]
  - JOINT SWELLING [None]
  - LOCAL SWELLING [None]
  - MALAISE [None]
  - OEDEMA PERIPHERAL [None]
  - ORAL HERPES [None]
  - PAIN [None]
  - PAIN IN EXTREMITY [None]
  - PRURITUS [None]
  - RECTAL DISCHARGE [None]
  - SKIN ULCER [None]
  - STOMACH DISCOMFORT [None]
  - SUNBURN [None]
  - TOOTHACHE [None]
  - VIRAL INFECTION [None]
  - VOMITING [None]
  - WEIGHT INCREASED [None]
